FAERS Safety Report 20902069 (Version 2)
Quarter: 2022Q4

REPORT INFORMATION
  Report Type: Report from Study
  Country: US (occurrence: US)
  Receive Date: 20220601
  Receipt Date: 20221129
  Transmission Date: 20230113
  Serious: No
  Sender: FDA-Public Use
  Company Number: US-KYOWAKIRIN-2022BKK007850

PATIENT

DRUGS (1)
  1. CRYSVITA [Suspect]
     Active Substance: BUROSUMAB-TWZA
     Indication: Hereditary hypophosphataemic rickets
     Dosage: 40 MG, EVERY 28 DAYS
     Route: 058
     Dates: start: 20220118

REACTIONS (6)
  - Arthralgia [Unknown]
  - Tooth fracture [Unknown]
  - Chest pain [Unknown]
  - Dyspnoea [Unknown]
  - Hypoaesthesia [Unknown]
  - Injection site pruritus [Unknown]
